FAERS Safety Report 8174257-8 (Version None)
Quarter: 2012Q1

REPORT INFORMATION
  Report Type: 
  Country: None (occurrence: None)
  Receive Date: 20120227
  Receipt Date: 20110412
  Transmission Date: 20120608
  Serious: Yes (Other)
  Sender: FDA-Public Use
  Company Number: US-SEPTODONT-201100072

PATIENT
  Age: 58 Year
  Sex: Male

DRUGS (1)
  1. LIDOCAINE HYDROCHLORIDE 2% W/ EPINEPHRINE INJ [Suspect]
     Indication: LOCAL ANAESTHESIA
     Dosage: 27 GAUGE WITH ASPIRATION DENTAL
     Route: 004

REACTIONS (4)
  - DIZZINESS [None]
  - STRABISMUS [None]
  - AMAUROSIS [None]
  - DIPLOPIA [None]
